FAERS Safety Report 24978961 (Version 1)
Quarter: 2025Q1

REPORT INFORMATION
  Report Type: Spontaneous
  Country: US (occurrence: US)
  Receive Date: 20250218
  Receipt Date: 20250218
  Transmission Date: 20250409
  Serious: Yes (Other)
  Sender: AMGEN
  Company Number: US-AMGEN-USASP2025028633

PATIENT

DRUGS (9)
  1. PEGFILGRASTIM [Suspect]
     Active Substance: PEGFILGRASTIM
     Indication: Autologous haematopoietic stem cell transplant
     Route: 065
  2. PEGFILGRASTIM [Suspect]
     Active Substance: PEGFILGRASTIM
     Indication: Off label use
  3. CARMUSTINE [Concomitant]
     Active Substance: CARMUSTINE
     Route: 065
  4. ACYCLOVIR [Concomitant]
     Active Substance: ACYCLOVIR
     Route: 040
  5. ETOPOSIDE [Concomitant]
     Active Substance: ETOPOSIDE
     Route: 065
  6. CYTARABINE [Concomitant]
     Active Substance: CYTARABINE
     Route: 065
  7. MELPHALAN [Concomitant]
     Active Substance: MELPHALAN
     Route: 065
  8. RITUXIMAB [Concomitant]
     Active Substance: RITUXIMAB
     Route: 065
  9. CYCLOPHOSPHAMIDE [Concomitant]
     Active Substance: CYCLOPHOSPHAMIDE
     Route: 065

REACTIONS (6)
  - Hepatotoxicity [Unknown]
  - Febrile neutropenia [Unknown]
  - Renal disorder [Unknown]
  - Gastrointestinal toxicity [Unknown]
  - Infection [Unknown]
  - Off label use [Unknown]
